FAERS Safety Report 24093674 (Version 3)
Quarter: 2024Q3

REPORT INFORMATION
  Report Type: Spontaneous
  Country: US (occurrence: US)
  Receive Date: 20240715
  Receipt Date: 20240905
  Transmission Date: 20241017
  Serious: No
  Sender: ROCHE
  Company Number: US-ROCHE-10000025959

PATIENT
  Age: 9 Year
  Sex: Male
  Weight: 24.95 kg

DRUGS (2)
  1. XOLAIR [Suspect]
     Active Substance: OMALIZUMAB
     Indication: Urticaria
     Dosage: TAKE 2 INJECTIONS AT A TIME.
     Route: 058
  2. XOLAIR [Suspect]
     Active Substance: OMALIZUMAB
     Indication: Urticaria
     Route: 058

REACTIONS (5)
  - Drug delivery system malfunction [Unknown]
  - No adverse event [Unknown]
  - Product dose omission in error [Unknown]
  - Wrong technique in product usage process [Unknown]
  - Exposure via skin contact [Unknown]

NARRATIVE: CASE EVENT DATE: 20240711
